FAERS Safety Report 17497718 (Version 1)
Quarter: 2020Q1

REPORT INFORMATION
  Report Type: Spontaneous
  Country: DE (occurrence: DE)
  Receive Date: 20200304
  Receipt Date: 20200304
  Transmission Date: 20200409
  Serious: Yes (Other)
  Sender: FDA-Public Use
  Company Number: DE-AMGEN-DEUSP2020033559

PATIENT
  Age: 21 Year
  Sex: Male
  Weight: 69.5 kg

DRUGS (7)
  1. ARANESP [Suspect]
     Active Substance: DARBEPOETIN ALFA
     Indication: NEPHROGENIC ANAEMIA
     Dosage: UNK
     Route: 042
     Dates: start: 20020916, end: 20021128
  2. NEORECORMON [Suspect]
     Active Substance: ERYTHROPOIETIN
     Dosage: 8000 INTERNATIONAL UNIT
     Route: 058
     Dates: start: 20020416, end: 20020916
  3. NEORECORMON [Suspect]
     Active Substance: ERYTHROPOIETIN
     Dosage: 8000 INTERNATIONAL UNIT
     Route: 058
     Dates: start: 20020110, end: 20020208
  4. NEORECORMON [Suspect]
     Active Substance: ERYTHROPOIETIN
     Indication: NEPHROGENIC ANAEMIA
     Dosage: 9000 INTERNATIONAL UNIT
     Route: 058
     Dates: start: 20010730, end: 20020110
  5. NEORECORMON [Suspect]
     Active Substance: ERYTHROPOIETIN
     Dosage: 6000 INTERNATIONAL UNIT
     Route: 058
     Dates: start: 20020204, end: 20020416
  6. BENALAPRIL [Concomitant]
     Active Substance: ENALAPRIL MALEATE
     Dosage: UNK
     Dates: start: 20021009, end: 20021129
  7. ARANESP [Suspect]
     Active Substance: DARBEPOETIN ALFA
     Dosage: UNK
     Route: 042
     Dates: start: 20021128

REACTIONS (1)
  - Aplasia pure red cell [Unknown]
